FAERS Safety Report 6223216-0 (Version None)
Quarter: 2009Q2

REPORT INFORMATION
  Report Type: 
  Country: None (occurrence: None)
  Receive Date: 20090611
  Receipt Date: 20090604
  Transmission Date: 20091009
  Serious: Yes (Hospitalization, Other)
  Sender: FDA-Public Use
  Company Number: US-AVENTIS-200914931US

PATIENT
  Sex: Female

DRUGS (3)
  1. LOVENOX [Suspect]
     Dosage: DOSE: 30 SYRINGES OF 80 OR 100 MG INJECTIONS
     Dates: start: 20090601, end: 20090601
  2. WARFARIN SODIUM [Suspect]
     Dosage: DOSE: UNK
  3. ALCOHOL [Suspect]
     Dosage: DOSE: UNK

REACTIONS (6)
  - ACTIVATED PARTIAL THROMBOPLASTIN TIME PROLONGED [None]
  - BLOOD PRESSURE DECREASED [None]
  - ECCHYMOSIS [None]
  - HAEMORRHAGE [None]
  - OVERDOSE [None]
  - PALLOR [None]
